FAERS Safety Report 5264134-4 (Version None)
Quarter: 2007Q1

REPORT INFORMATION
  Report Type: 
  Country: None (occurrence: None)
  Receive Date: 20070313
  Receipt Date: 20070301
  Transmission Date: 20070707
  Serious: Yes (Hospitalization)
  Sender: FDA-Public Use
  Company Number: GB-SANOFI-SYNTHELABO-A01200702245

PATIENT
  Sex: Female

DRUGS (2)
  1. FLUOROURACIL [Suspect]
     Dosage: UNK
     Dates: start: 20070205, end: 20070205
  2. ELOXATIN [Suspect]
     Dosage: UNK
     Dates: start: 20070205, end: 20070205

REACTIONS (1)
  - MYOCARDITIS [None]
